FAERS Safety Report 9077285 (Version 1)
Quarter: 2013Q1

REPORT INFORMATION
  Report Type: Spontaneous
  Country: CO (occurrence: CO)
  Receive Date: 20130130
  Receipt Date: 20130130
  Transmission Date: 20140127
  Serious: Yes (Other)
  Sender: FDA-Public Use
  Company Number: CO-AMGEN-COLSP2013006297

PATIENT
  Age: 67 Year
  Sex: Female

DRUGS (3)
  1. ENBREL [Suspect]
     Indication: RHEUMATOID ARTHRITIS
     Dosage: 50 MG, WEEKLY
     Route: 058
     Dates: start: 2010
  2. EUTIROX [Concomitant]
     Indication: THYROID DISORDER
     Dosage: 50 MG, 1X/DAY
     Route: 048
     Dates: start: 2009
  3. METFORMIN [Concomitant]
     Indication: PAIN
     Dosage: 800 MG, 1X/DAY
     Route: 048
     Dates: start: 2009

REACTIONS (3)
  - Fall [Unknown]
  - Rotator cuff syndrome [Unknown]
  - Pain [Unknown]
